FAERS Safety Report 8209413-3 (Version None)
Quarter: 2012Q1

REPORT INFORMATION
  Report Type: 
  Country: None (occurrence: None)
  Receive Date: 20120314
  Receipt Date: 20120309
  Transmission Date: 20120608
  Serious: Yes (Hospitalization, Other)
  Sender: FDA-Public Use
  Company Number: US-BAYER-2012-018296

PATIENT
  Age: 47 Year
  Sex: Female
  Weight: 71.655 kg

DRUGS (2)
  1. MAGNEVIST [Suspect]
  2. MAGNEVIST [Suspect]
     Indication: NUCLEAR MAGNETIC RESONANCE IMAGING
     Dosage: 10 ML, ONCE, LAC
     Route: 042
     Dates: start: 20120221, end: 20120221

REACTIONS (5)
  - COUGH [None]
  - SKIN WARM [None]
  - DYSPNOEA [None]
  - RASH MACULAR [None]
  - ABDOMINAL PAIN [None]
